FAERS Safety Report 17469833 (Version 1)
Quarter: 2020Q1

REPORT INFORMATION
  Report Type: Spontaneous
  Country: FR (occurrence: FR)
  Receive Date: 20200227
  Receipt Date: 20200227
  Transmission Date: 20200409
  Serious: Yes (Hospitalization, Other)
  Sender: FDA-Public Use
  Company Number: FR-CHIESI USA, INC.-FR-2020CHI000118

PATIENT

DRUGS (10)
  1. TICAGRELOR. [Suspect]
     Active Substance: TICAGRELOR
     Indication: PRODUCT USED FOR UNKNOWN INDICATION
     Dosage: 90 MG, UNK
     Route: 065
  2. ASPIRIN                            /00002701/ [Suspect]
     Active Substance: ASPIRIN
     Indication: PRODUCT USED FOR UNKNOWN INDICATION
     Dosage: 75 MG, QD
     Route: 065
  3. CANGRELOR [Suspect]
     Active Substance: CANGRELOR
     Indication: THROMBOSIS PROPHYLAXIS
     Dosage: 180 MG, UNK
     Route: 065
  4. TICAGRELOR. [Suspect]
     Active Substance: TICAGRELOR
     Indication: THROMBOSIS PROPHYLAXIS
     Dosage: 180 MG, QD
     Route: 065
  5. PARACETAMOL [Suspect]
     Active Substance: ACETAMINOPHEN
     Indication: THROMBOANGIITIS OBLITERANS
     Dosage: UNK, QD
     Route: 065
  6. TICAGRELOR. [Suspect]
     Active Substance: TICAGRELOR
     Dosage: 180 MG, QD
     Route: 065
  7. ASPIRIN                            /00002701/ [Suspect]
     Active Substance: ASPIRIN
     Dosage: 75 MG, UNK
     Route: 065
  8. ASPIRIN                            /00002701/ [Suspect]
     Active Substance: ASPIRIN
     Dosage: 75 MG, QD
     Route: 065
  9. ASPIRIN                            /00002701/ [Suspect]
     Active Substance: ASPIRIN
     Indication: THROMBOSIS PROPHYLAXIS
     Dosage: 150 MG, UNK
     Route: 065
  10. INTEGRILIN [Suspect]
     Active Substance: EPTIFIBATIDE
     Indication: THROMBOSIS PROPHYLAXIS
     Dosage: UNK
     Route: 042

REACTIONS (4)
  - Intracranial aneurysm [Unknown]
  - Drug abuse [Unknown]
  - Drug ineffective [Unknown]
  - Headache [Unknown]
